FAERS Safety Report 9906988 (Version 2)
Quarter: 2014Q1

REPORT INFORMATION
  Report Type: Report from Study
  Country: US (occurrence: US)
  Receive Date: 20140218
  Receipt Date: 20140317
  Transmission Date: 20141002
  Serious: Yes (Death, Hospitalization, Other)
  Sender: FDA-Public Use
  Company Number: US-GILEAD-2014-0094332

PATIENT
  Age: 24 Year
  Sex: Female

DRUGS (12)
  1. AZTREONAM LYSINE [Suspect]
     Indication: CYSTIC FIBROSIS
     Dosage: 84 ML, UNK
     Route: 055
     Dates: start: 20120917, end: 20130618
  2. NORVASC [Concomitant]
     Dosage: 5 MG, QD
     Route: 048
     Dates: end: 20140124
  3. NORVASC [Concomitant]
     Dosage: 5 MG, QD
     Route: 050
     Dates: start: 20140124
  4. VITAMIN D3 [Concomitant]
     Dosage: 1000 UNITS (DF), QD
     Route: 048
     Dates: end: 20140124
  5. VITAMIN D3 [Concomitant]
     Dosage: 1000 UNITS (DF), QD
     Dates: start: 20140125
  6. CREON [Concomitant]
     Dosage: 4 CAPSULES (DF), TID
     Route: 050
  7. AMITIZA [Concomitant]
     Dosage: 8 ?G, BID
     Route: 048
     Dates: end: 20140125
  8. MERREM [Concomitant]
     Dosage: 500 MG, EVERY 12-HOURS
     Dates: start: 20140119, end: 20140124
  9. MERREM [Concomitant]
     Dosage: 500 MG, EVERY 8-HOURS
     Route: 042
     Dates: start: 20140124, end: 20140126
  10. MERREM [Concomitant]
     Dosage: 500 MG, EVERY 6-HOURS
     Route: 042
     Dates: start: 20140126, end: 20140128
  11. MERREM [Concomitant]
     Dosage: 2000 MG, EVERY 8-HOURS
     Route: 042
     Dates: start: 20140128
  12. ACTIGALL [Concomitant]
     Dosage: 300 MG, BID
     Route: 048

REACTIONS (3)
  - Respiratory failure [Fatal]
  - Pneumonia pseudomonal [Unknown]
  - Pneumonia staphylococcal [Unknown]
